FAERS Safety Report 4567162-7 (Version None)
Quarter: 2005Q1

REPORT INFORMATION
  Report Type: 
  Country: None (occurrence: None)
  Receive Date: 20050127
  Receipt Date: 20050114
  Transmission Date: 20050727
  Serious: Yes (Hospitalization)
  Sender: FDA-Public Use
  Company Number: S04-USA-06984-01

PATIENT
  Age: 40 Year
  Sex: Female

DRUGS (9)
  1. CELEXA [Suspect]
     Indication: DEPRESSION
     Dosage: 40 MG QD PO
     Route: 048
     Dates: start: 20040730, end: 20041001
  2. AMBIEN [Concomitant]
  3. DIAZEPAM [Concomitant]
  4. BACLOFEN [Concomitant]
  5. DIAMOX [Concomitant]
  6. DDAVP [Concomitant]
  7. DITROPAN [Concomitant]
  8. PREVACID [Concomitant]
  9. TRILEPTAL [Concomitant]

REACTIONS (2)
  - BARRETT'S OESOPHAGUS [None]
  - PANCREATITIS [None]
